FAERS Safety Report 9736799 (Version 1)
Quarter: 2013Q4

REPORT INFORMATION
  Report Type: Spontaneous
  Country: US (occurrence: US)
  Receive Date: 20131206
  Receipt Date: 20131206
  Transmission Date: 20140711
  Serious: No
  Sender: FDA-Public Use
  Company Number: US-BIOGENIDEC-2013BI094635

PATIENT
  Age: 57 Year
  Sex: Male
  Weight: 68 kg

DRUGS (7)
  1. TECFIDERA [Suspect]
     Indication: MULTIPLE SCLEROSIS
     Route: 048
  2. TECFIDERA [Suspect]
     Indication: MULTIPLE SCLEROSIS
     Route: 048
     Dates: start: 201309
  3. NEURONTIN [Concomitant]
  4. OXYCODONE [Concomitant]
  5. MULTI CAP FOR HIM [Concomitant]
  6. TYLENOL 8 HR [Concomitant]
  7. MVI FOR MEN [Concomitant]

REACTIONS (1)
  - Insomnia [Not Recovered/Not Resolved]
